FAERS Safety Report 4964055-8 (Version None)
Quarter: 2006Q1

REPORT INFORMATION
  Report Type: 
  Country: None (occurrence: None)
  Receive Date: 20060330
  Receipt Date: 20060308
  Transmission Date: 20060701
  Serious: Yes (Hospitalization, Other)
  Sender: FDA-Public Use
  Company Number: US200603001935

PATIENT
  Age: 66 Year
  Sex: Female

DRUGS (4)
  1. HUMULIN R [Suspect]
     Indication: DIABETES MELLITUS
     Dates: start: 19990101
  2. HUMULIN ULTRALEN (HUMAN INSULIN (RDNA ORIGIN) ULTRALENTE) VIAL [Suspect]
     Indication: DIABETES MELLITUS
     Dates: start: 19990101
  3. HUMULIN 70/30 [Suspect]
     Indication: DIABETES MELLITUS
     Dates: start: 19990101
  4. HUMULIN 50/50 [Suspect]
     Indication: DIABETES MELLITUS
     Dates: start: 19980101

REACTIONS (15)
  - ABDOMINAL INFECTION [None]
  - ABDOMINAL PAIN [None]
  - BLOOD GLUCOSE INCREASED [None]
  - CATHETER SITE PAIN [None]
  - CHOLECYSTECTOMY [None]
  - CORONARY ARTERY SURGERY [None]
  - DRUG INEFFECTIVE [None]
  - DRUG INTOLERANCE [None]
  - EYE SWELLING [None]
  - HEADACHE [None]
  - MALAISE [None]
  - NIGHT SWEATS [None]
  - PAIN IN EXTREMITY [None]
  - PYREXIA [None]
  - SWELLING FACE [None]
